FAERS Safety Report 6870808-1 (Version None)
Quarter: 2010Q3

REPORT INFORMATION
  Report Type: 
  Country: None (occurrence: None)
  Receive Date: 20100723
  Receipt Date: 20100715
  Transmission Date: 20110219
  Serious: Yes (Other)
  Sender: FDA-Public Use
  Company Number: FR-MILLENNIUM PHARMACEUTICALS, INC.-2010-03734

PATIENT

DRUGS (8)
  1. VELCADE [Suspect]
     Indication: MULTIPLE MYELOMA
     Dosage: 1.3 MG, CYCLIC
  2. VELCADE [Suspect]
     Dosage: 1.3 MG, UNK
     Dates: start: 20091221
  3. THALIDOMIDE [Suspect]
     Indication: MULTIPLE MYELOMA
     Dosage: 100 MG, UNK
     Dates: start: 20091221, end: 20100104
  4. DECTANCYL [Concomitant]
     Indication: MULTIPLE MYELOMA
     Dosage: 40 MG, CYCLIC
  5. LEVOTHYROXINE SODIUM [Concomitant]
     Dosage: 75 UG, UNK
  6. ZELITREX                           /01269701/ [Concomitant]
     Dosage: 500 MG, UNK
  7. BACTRIM [Concomitant]
     Dosage: 400 MG, UNK
  8. LOVENOX [Concomitant]
     Indication: THROMBOSIS PROPHYLAXIS
     Dosage: 40 IU, UNK

REACTIONS (5)
  - DEPRESSION [None]
  - DERMATITIS EXFOLIATIVE [None]
  - PARAESTHESIA ORAL [None]
  - SKIN CHAPPED [None]
  - XEROSIS [None]
